FAERS Safety Report 4488823-4 (Version None)
Quarter: 2004Q4

REPORT INFORMATION
  Report Type: 
  Country: None (occurrence: None)
  Receive Date: 20041029
  Receipt Date: 20041021
  Transmission Date: 20050328
  Serious: Yes (Death, Other)
  Sender: FDA-Public Use
  Company Number: BR-MERCK-0410BRA00440

PATIENT
  Age: 42 Year
  Sex: Female

DRUGS (1)
  1. VIOXX [Suspect]
     Indication: RHEUMATOID ARTHRITIS
     Route: 048
     Dates: start: 20010101, end: 20030101

REACTIONS (1)
  - MYOCARDIAL INFARCTION [None]
